FAERS Safety Report 8876322 (Version 3)
Quarter: 2012Q4

REPORT INFORMATION
  Report Type: 
  Country: DE (occurrence: DE)
  Receive Date: 20121031
  Receipt Date: 20121112
  Transmission Date: 20130627
  Serious: Yes (Death, Hospitalization)
  Sender: FDA-Public Use
  Company Number: DE-JNJFOC-20121016185

PATIENT
  Age: 89 Year
  Sex: Female
  Weight: 59.86 kg

DRUGS (15)
  1. XARELTO [Suspect]
     Indication: CEREBROVASCULAR ACCIDENT PROPHYLAXIS
     Route: 048
     Dates: start: 20121017, end: 20121018
  2. XARELTO [Suspect]
     Indication: ATRIAL FIBRILLATION
     Route: 048
     Dates: start: 20121017, end: 20121018
  3. ASS [Suspect]
     Indication: PRODUCT USED FOR UNKNOWN INDICATION
     Route: 065
     Dates: end: 20121016
  4. DIGIMERCK [Concomitant]
     Route: 065
  5. PANTOZOL [Concomitant]
     Route: 065
  6. BELOC-ZOK [Concomitant]
     Route: 065
  7. NORSPAN [Concomitant]
     Route: 065
  8. ALLOPURINOL [Concomitant]
     Route: 065
  9. TAVOR [Concomitant]
     Route: 065
  10. ANTACID [Concomitant]
     Route: 065
  11. AMLODIPINE [Concomitant]
     Route: 065
  12. METAMIZOLE SODIUM [Concomitant]
     Route: 065
  13. MAGNESIUM VERLA [Concomitant]
     Route: 065
  14. MIRTAZAPINE [Concomitant]
     Route: 065
  15. TORASEMIDE [Concomitant]
     Route: 065

REACTIONS (3)
  - Cerebellar haemorrhage [Fatal]
  - Coma [Fatal]
  - Adverse event [Fatal]
